FAERS Safety Report 24285160 (Version 1)
Quarter: 2024Q3

REPORT INFORMATION
  Report Type: Spontaneous
  Country: GB (occurrence: GB)
  Receive Date: 20240905
  Receipt Date: 20240905
  Transmission Date: 20241017
  Serious: Yes (Disabling)
  Sender: ALKEM
  Company Number: None

PATIENT
  Age: 58 Year
  Sex: Female
  Weight: 146 kg

DRUGS (34)
  1. PREGABALIN [Suspect]
     Active Substance: PREGABALIN
     Indication: Ill-defined disorder
     Dosage: UNK
     Route: 065
     Dates: start: 20230831
  2. CALCIUM CARBONATE\CHOLECALCIFEROL [Concomitant]
     Active Substance: CALCIUM CARBONATE\CHOLECALCIFEROL
     Indication: Product used for unknown indication
     Dosage: 2 DOSAGE FORM, QD, (AT LUNCHTIME AND BEDTIME)
     Route: 065
     Dates: start: 20230309
  3. AMITRIPTYLINE HYDROCHLORIDE [Concomitant]
     Active Substance: AMITRIPTYLINE HYDROCHLORIDE
     Indication: Product used for unknown indication
     Dosage: 1 DOSAGE FORM, HS (NIGHT)
     Route: 065
     Dates: start: 20230309
  4. AUDAVATE [Concomitant]
     Indication: Product used for unknown indication
     Dosage: 1 DOSAGE FORM, PRN (AS NECESSARY) (APPLY THINLY TO THE AFFECTED AREA(S) ONCE OR TW...)
     Route: 065
     Dates: start: 20230729
  5. BECLOMETHASONE DIPROPIONATE [Concomitant]
     Active Substance: BECLOMETHASONE DIPROPIONATE
     Indication: Product used for unknown indication
     Dosage: 4 DOSAGE FORM, QD (INTO EACH NOSTRIL (MOR... )
     Route: 045
     Dates: start: 20230309
  6. CLOBADERM [Concomitant]
     Indication: Wound
     Dosage: 1 DOSAGE FORM, PRN (AS NECESSARY) (APPLY TO ABDOMINAL WOUND UNDER OCCLUSION ONCE A.)
     Route: 065
     Dates: start: 20230706, end: 20230831
  7. CLOTRIMAZOLE [Concomitant]
     Active Substance: CLOTRIMAZOLE
     Indication: Groin pain
     Dosage: 1 DOSAGE FORM, PRN (AS NECESSARY) (APPLY TO GROIN AND UNDER BREAST AREAS IF SORE O... )
     Route: 065
     Dates: start: 20230309
  8. AMOXICILLIN\CLAVULANATE POTASSIUM [Concomitant]
     Active Substance: AMOXICILLIN\CLAVULANATE POTASSIUM
     Indication: Product used for unknown indication
     Dosage: 3 DOSAGE FORM, QD
     Route: 065
     Dates: start: 20230808, end: 20230815
  9. CYANOCOBALAMIN [Concomitant]
     Active Substance: CYANOCOBALAMIN
     Indication: Product used for unknown indication
     Dosage: 250 MICROGRAM (12 WEEK)
     Route: 030
     Dates: start: 20230309
  10. DABIGATRAN ETEXILATE [Concomitant]
     Active Substance: DABIGATRAN ETEXILATE
     Indication: Product used for unknown indication
     Dosage: 2 DOSAGE FORM, QD (THIS IS AN ANTIC...)
     Route: 065
     Dates: start: 20230309
  11. DERMOL [Concomitant]
     Active Substance: BENZALKONIUM CHLORIDE\CHLORHEXIDINE HYDROCHLORIDE\ISOPROPYL MYRISTATE\PARAFFIN
     Indication: Product used for unknown indication
     Dosage: 3 DOSAGE FORM, PRN (AS NEEDED)
     Route: 065
     Dates: start: 20230309
  12. DIAZEPAM [Concomitant]
     Active Substance: DIAZEPAM
     Indication: Anxiety
     Dosage: 1 DOSAGE FORM, PRN (AS NECESSARY) (UP TO TWICE DAILY. NOT FOR LONG TERM USE.)
     Route: 065
     Dates: start: 20230817, end: 20230819
  13. DOCUSATE SODIUM [Concomitant]
     Active Substance: DOCUSATE SODIUM
     Indication: Product used for unknown indication
     Dosage: 4 DOSAGE FORM, QD (AND ONE CAPSULE A..)
     Route: 065
     Dates: start: 20230309
  14. DOSULEPIN HYDROCHLORIDE [Concomitant]
     Active Substance: DOTHIEPIN HYDROCHLORIDE
     Indication: Product used for unknown indication
     Dosage: 3 DOSAGE FORM, HS (AT 10PM)
     Route: 065
     Dates: start: 20230309
  15. BUDESONIDE\FORMOTEROL [Concomitant]
     Active Substance: BUDESONIDE\FORMOTEROL
     Indication: Product used for unknown indication
     Dosage: 4 DOSAGE FORM, QD
     Dates: start: 20230309
  16. FEXOFENADINE [Concomitant]
     Active Substance: FEXOFENADINE HYDROCHLORIDE
     Indication: Seasonal allergy
     Dosage: 1 DOSAGE FORM, QD (TAKE ONE DAILY - TO HELP WITH HAYFEVER SYMPTOMS)
     Route: 065
     Dates: start: 20230309
  17. FLUCLOXACILLIN [Concomitant]
     Active Substance: FLUCLOXACILLIN
     Indication: Product used for unknown indication
     Dosage: 4 DOSAGE FORM, QD
     Route: 065
     Dates: start: 20230731, end: 20230807
  18. FOLIC ACID [Concomitant]
     Active Substance: FOLIC ACID
     Indication: Product used for unknown indication
     Dosage: 1 DOSAGE FORM, QD
     Route: 065
     Dates: start: 20230309
  19. GABAPENTIN [Concomitant]
     Active Substance: GABAPENTIN
     Indication: Product used for unknown indication
     Dosage: 3600 MILLIGRAM, QD (36...)
     Route: 065
     Dates: start: 20230309
  20. Hydromol Cream [Concomitant]
     Indication: Product used for unknown indication
     Dosage: 2 DOSAGE FORM, QD (THINLY TO THE AFFECTED AREA(S))
     Route: 065
     Dates: start: 20230729
  21. ISPAGHULA EXTRACT\PSYLLIUM [Concomitant]
     Active Substance: HERBALS\PLANTAGO OVATA SEED\PLANTAGO SEED
     Indication: Product used for unknown indication
     Dosage: 2 DOSAGE FORM, QD
     Route: 065
     Dates: start: 20230309
  22. Macrogol compound [Concomitant]
     Indication: Constipation
     Dosage: UNK (DAY ONE: 4 SACHETS - IF NOT OPENED BOWELS DAY 2..)
     Route: 065
     Dates: start: 20230720
  23. MEBEVERINE HYDROCHLORIDE [Concomitant]
     Active Substance: MEBEVERINE HYDROCHLORIDE
     Indication: Product used for unknown indication
     Dosage: 3 DOSAGE FORM, QD (BEFORE FOOD)
     Route: 065
     Dates: start: 20230309
  24. METOCLOPRAMIDE [Concomitant]
     Active Substance: METOCLOPRAMIDE
     Indication: Product used for unknown indication
     Dosage: UNK (NOT IN BLISTER PACK PLEASE - ONLY ON PATIENT RE...)
     Route: 065
     Dates: start: 20230309
  25. MORPHINE SULFATE [Concomitant]
     Active Substance: MORPHINE SULFATE
     Indication: Product used for unknown indication
     Dosage: 1 DOSAGE FORM, PRN (AS NECESSARY) (4 TO 6 HOURLY IF NEEDED FOR SEV.)
     Route: 065
     Dates: start: 20230309
  26. PANTOPRAZOLE [Concomitant]
     Active Substance: PANTOPRAZOLE
     Indication: Product used for unknown indication
     Dosage: 2 DOSAGE FORM, QD (INSTEAD OF OMEP...)
     Route: 065
     Dates: start: 20230309
  27. PREGABALIN [Concomitant]
     Active Substance: PREGABALIN
     Indication: Product used for unknown indication
     Dosage: UNK (STOP GABAPENTIN ON EVENING THE DAY BEFORE AND T.)
     Route: 065
     Dates: start: 20230824
  28. QUININE [Concomitant]
     Active Substance: QUININE
     Indication: Product used for unknown indication
     Dosage: 1 DOSAGE FORM, QD (AT NIGHT FOR NOCTURNAL L... )
     Route: 065
     Dates: start: 20230309
  29. ALBUTEROL [Concomitant]
     Active Substance: ALBUTEROL
     Indication: Product used for unknown indication
     Dosage: 2 DOSAGE FORM, PRN (AS NECESSARY)
     Dates: start: 20230309
  30. SENNA [Concomitant]
     Active Substance: SENNA LEAF\SENNOSIDES\SENNOSIDES A AND B
     Indication: Constipation
     Dosage: 4 DOSAGE FORM, PRN (AT NIGHT AS REQUIRED)
     Route: 065
     Dates: start: 20230601
  31. SIMVASTATIN [Concomitant]
     Active Substance: SIMVASTATIN
     Indication: Product used for unknown indication
     Dosage: 1 DOSAGE FORM, HS (AT NIGHT)
     Route: 065
     Dates: start: 20230309
  32. TRAZODONE [Concomitant]
     Active Substance: TRAZODONE HYDROCHLORIDE
     Indication: Product used for unknown indication
     Dosage: 2 DOSAGE FORM, HS (AT NIGHT)
     Route: 065
     Dates: start: 20230309
  33. MORPHINE SULFATE [Concomitant]
     Active Substance: MORPHINE SULFATE
     Indication: Pain
     Dosage: 1 DOSAGE FORM, BID (12 HOUR)
     Route: 065
     Dates: start: 20230309
  34. ZOPICLONE [Concomitant]
     Active Substance: ZOPICLONE
     Indication: Product used for unknown indication
     Dosage: UNK (NOT IN BLISTER PACK PLEASE - ONLY ON PATIENT RE...)
     Route: 065
     Dates: start: 20230309

REACTIONS (3)
  - Nausea [Recovered/Resolved]
  - Headache [Recovered/Resolved]
  - Dizziness [Recovered/Resolved]

NARRATIVE: CASE EVENT DATE: 20230902
